FAERS Safety Report 14155931 (Version 1)
Quarter: 2017Q4

REPORT INFORMATION
  Report Type: Report from Study
  Country: TW (occurrence: TW)
  Receive Date: 20171103
  Receipt Date: 20171103
  Transmission Date: 20180321
  Serious: Yes (Hospitalization)
  Sender: FDA-Public Use
  Company Number: PHHO2013TW007541

PATIENT
  Age: 50 Year
  Sex: Male
  Weight: 69 kg

DRUGS (1)
  1. ACZ885 [Suspect]
     Active Substance: CANAKINUMAB
     Indication: CARDIOVASCULAR EVENT PROPHYLAXIS
     Dosage: 300 MG, QUARTERLY
     Route: 058
     Dates: start: 20121016, end: 20130327

REACTIONS (2)
  - Mediastinitis [Recovering/Resolving]
  - Localised infection [Recovering/Resolving]

NARRATIVE: CASE EVENT DATE: 20130602
